FAERS Safety Report 13998500 (Version 1)
Quarter: 2017Q3

REPORT INFORMATION
  Report Type: Report from Study
  Country: US (occurrence: US)
  Receive Date: 20170922
  Receipt Date: 20170922
  Transmission Date: 20171128
  Serious: Yes (Death, Hospitalization)
  Sender: FDA-Public Use
  Company Number: US-JNJFOC-20151225717

PATIENT
  Age: 45 Year
  Sex: Male
  Weight: 112 kg

DRUGS (18)
  1. IMBRUVICA [Suspect]
     Active Substance: IBRUTINIB
     Indication: CHRONIC LYMPHOCYTIC LEUKAEMIA
     Route: 048
     Dates: start: 20141206, end: 20160814
  2. ATIVAN [Suspect]
     Active Substance: LORAZEPAM
     Indication: ANXIETY
     Route: 048
  3. ATIVAN [Suspect]
     Active Substance: LORAZEPAM
     Indication: PAIN
     Route: 048
  4. LEXAPRO [Concomitant]
     Active Substance: ESCITALOPRAM OXALATE
     Route: 048
  5. ACYCLOVIR. [Concomitant]
     Active Substance: ACYCLOVIR
     Route: 048
  6. FIORICET [Suspect]
     Active Substance: ACETAMINOPHEN\BUTALBITAL\CAFFEINE
     Indication: ANXIETY
     Dosage: 1 UNIT
     Route: 048
  7. FIORICET [Suspect]
     Active Substance: ACETAMINOPHEN\BUTALBITAL\CAFFEINE
     Indication: PAIN
     Dosage: 1 UNIT
     Route: 048
  8. MORPHINE [Suspect]
     Active Substance: MORPHINE
     Indication: PAIN
  9. GABAPENTIN. [Concomitant]
     Active Substance: GABAPENTIN
     Route: 048
  10. DILAUDID [Suspect]
     Active Substance: HYDROMORPHONE HYDROCHLORIDE
     Indication: ANXIETY
     Route: 042
  11. R CHOP [Suspect]
     Active Substance: CYCLOPHOSPHAMIDE\DOXORUBICIN\PREDNISONE\RITUXIMAB\VINCRISTINE
     Indication: CHRONIC LYMPHOCYTIC LEUKAEMIA
     Dates: start: 20160512
  12. GRANISETRON [Concomitant]
     Active Substance: GRANISETRON
     Route: 048
  13. IMBRUVICA [Suspect]
     Active Substance: IBRUTINIB
     Indication: B-CELL SMALL LYMPHOCYTIC LYMPHOMA
     Route: 048
     Dates: start: 20141206, end: 20160814
  14. MORPHINE [Suspect]
     Active Substance: MORPHINE
     Indication: ANXIETY
  15. CLARITIN [Concomitant]
     Active Substance: LORATADINE
     Route: 048
  16. R CHOP [Suspect]
     Active Substance: CYCLOPHOSPHAMIDE\DOXORUBICIN\PREDNISONE\RITUXIMAB\VINCRISTINE
     Indication: B-CELL SMALL LYMPHOCYTIC LYMPHOMA
     Dates: start: 20160512
  17. DILAUDID [Suspect]
     Active Substance: HYDROMORPHONE HYDROCHLORIDE
     Indication: PAIN
     Route: 042
  18. VENTOLIN HFA [Concomitant]
     Active Substance: ALBUTEROL SULFATE
     Dosage: 1 UNIT

REACTIONS (19)
  - Hepatic lesion [Unknown]
  - Death [Fatal]
  - Vomiting [Unknown]
  - Neutropenia [Unknown]
  - Sinusitis bacterial [Unknown]
  - Peripheral swelling [Not Recovered/Not Resolved]
  - Nausea [Not Recovered/Not Resolved]
  - Disease progression [Unknown]
  - Tachypnoea [Unknown]
  - Mental status changes [Unknown]
  - Confusional state [Unknown]
  - Viral infection [Unknown]
  - Hypoxia [Unknown]
  - Capillary fragility [Unknown]
  - Agitation [Recovering/Resolving]
  - Supraventricular extrasystoles [Unknown]
  - Sinus tachycardia [Unknown]
  - Platelet count decreased [Unknown]
  - Lethargy [Unknown]

NARRATIVE: CASE EVENT DATE: 20160308
